FAERS Safety Report 10835700 (Version 1)
Quarter: 2015Q1

REPORT INFORMATION
  Report Type: Spontaneous
  Country: US (occurrence: None)
  Receive Date: 20150218
  Receipt Date: 20150218
  Transmission Date: 20150721
  Serious: Yes (Death)
  Sender: FDA-Public Use
  Company Number: US-ALKEM-000852

PATIENT
  Age: 72 Year
  Sex: Female

DRUGS (3)
  1. RITUXIMAB (RITUXIMAB) [Suspect]
     Active Substance: RITUXIMAB
     Indication: MYOPATHY
  2. MYCOPHENOLATE MOFETIL (MYCOPHENOLATE MOFETIL) [Suspect]
     Active Substance: MYCOPHENOLATE MOFETIL
     Indication: MYOPATHY
  3. PREDNISONE (PREDNISONE) [Suspect]
     Active Substance: PREDNISONE
     Indication: MYOPATHY
     Dosage: 10.000...-MG-1.0 TIMES/ PER 1.0DAYS

REACTIONS (2)
  - Cerebral toxoplasmosis [None]
  - Off label use [None]
